FAERS Safety Report 7781431-9 (Version None)
Quarter: 2011Q3

REPORT INFORMATION
  Report Type: 
  Country: None (occurrence: None)
  Receive Date: 20110927
  Receipt Date: 20110922
  Transmission Date: 20111222
  Serious: Yes (Life-Threatening, Hospitalization)
  Sender: FDA-Public Use
  Company Number: PHHY2011DK84172

PATIENT
  Sex: Female

DRUGS (1)
  1. METHIMAZOLE [Suspect]
     Indication: HYPERTHYROIDISM
     Dosage: 15 MG DAILY ON MONDAYS, WEDNESDAYS AND FRIDAYS AND 10 MG ALL OTHER DAYS
     Route: 048
     Dates: start: 20110802, end: 20110917

REACTIONS (5)
  - LEUKOPENIA [None]
  - INTERNATIONAL NORMALISED RATIO INCREASED [None]
  - LIVER DISORDER [None]
  - FALL [None]
  - INFECTION [None]
